FAERS Safety Report 24378587 (Version 1)
Quarter: 2024Q3

REPORT INFORMATION
  Report Type: Spontaneous
  Country: US (occurrence: None)
  Receive Date: 20240927
  Receipt Date: 20240927
  Transmission Date: 20241017
  Serious: Yes (Hospitalization)
  Sender: Public
  Company Number: None

PATIENT
  Age: 77 Year
  Sex: Male
  Weight: 85 kg

DRUGS (1)
  1. TAMSULOSIN HYDROCHLORIDE [Suspect]
     Active Substance: TAMSULOSIN HYDROCHLORIDE
     Indication: Hypertension
     Dosage: 0.40 MG   AM  ORAL?
     Route: 048
     Dates: start: 20230303, end: 20231130

REACTIONS (1)
  - Syncope [None]

NARRATIVE: CASE EVENT DATE: 20231130
